FAERS Safety Report 6177281-X (Version None)
Quarter: 2009Q2

REPORT INFORMATION
  Report Type: 
  Country: None (occurrence: None)
  Receive Date: 20090504
  Receipt Date: 20090424
  Transmission Date: 20091009
  Serious: Yes (Other)
  Sender: FDA-Public Use
  Company Number: US-BAYER-200919054NA

PATIENT
  Age: 41 Year
  Sex: Female

DRUGS (6)
  1. AVELOX [Suspect]
     Indication: EAR INFECTION
     Dosage: TOTAL DAILY DOSE: 400 MG  UNIT DOSE: 400 MG
     Dates: start: 20090223
  2. AVELOX [Suspect]
     Dates: start: 20081101
  3. SYNTHROID [Concomitant]
  4. METFORMIN HCL [Concomitant]
  5. WELLBUTRIN XL [Concomitant]
  6. CLONAZEPAM [Concomitant]

REACTIONS (4)
  - ADVERSE DRUG REACTION [None]
  - EAR CANAL STENOSIS [None]
  - PRURITUS [None]
  - RASH GENERALISED [None]
